FAERS Safety Report 16653138 (Version 2)
Quarter: 2019Q4

REPORT INFORMATION
  Report Type: Spontaneous
  Country: US (occurrence: US)
  Receive Date: 20190731
  Receipt Date: 20191226
  Transmission Date: 20200122
  Serious: Yes (Other)
  Sender: FDA-Public Use
  Company Number: US-PFIZER INC-2019325491

PATIENT
  Age: 67 Year
  Sex: Female
  Weight: 84 kg

DRUGS (1)
  1. BOSULIF [Suspect]
     Active Substance: BOSUTINIB MONOHYDRATE
     Indication: CHRONIC MYELOID LEUKAEMIA
     Dosage: 500 MG, DAILY
     Route: 048
     Dates: start: 201701, end: 20191129

REACTIONS (11)
  - Diarrhoea [Unknown]
  - Orthostatic hypotension [Unknown]
  - Vomiting [Unknown]
  - Ear infection [Unknown]
  - Dehydration [Unknown]
  - Ill-defined disorder [Unknown]
  - Loss of consciousness [Unknown]
  - Dizziness [Unknown]
  - Dysarthria [Unknown]
  - Headache [Not Recovered/Not Resolved]
  - Hypotension [Unknown]
